FAERS Safety Report 6883579-X (Version None)
Quarter: 2010Q3

REPORT INFORMATION
  Report Type: 
  Country: None (occurrence: None)
  Receive Date: 20100708
  Receipt Date: 20100402
  Transmission Date: 20110219
  Serious: Yes (Other)
  Sender: FDA-Public Use
  Company Number: 2010022358

PATIENT
  Age: 59 Year
  Sex: Male
  Weight: 68 kg

DRUGS (3)
  1. CHANTIX [Suspect]
     Indication: SMOKING CESSATION THERAPY
     Dosage: 0.5 MG, 1X/DAY, ORAL : 1 MG, 2X/DAY, ORAL
     Route: 048
     Dates: start: 20100201, end: 20100201
  2. CHANTIX [Suspect]
     Indication: SMOKING CESSATION THERAPY
     Dosage: 0.5 MG, 1X/DAY, ORAL : 1 MG, 2X/DAY, ORAL
     Route: 048
     Dates: start: 20100201, end: 20100201
  3. ASPIRIN [Concomitant]

REACTIONS (6)
  - ABDOMINAL DISCOMFORT [None]
  - DYSPEPSIA [None]
  - FATIGUE [None]
  - RASH [None]
  - SUICIDAL IDEATION [None]
  - VOMITING [None]
